FAERS Safety Report 11881070 (Version 2)
Quarter: 2016Q1

REPORT INFORMATION
  Report Type: Spontaneous
  Country: IT (occurrence: IT)
  Receive Date: 20151230
  Receipt Date: 20160104
  Transmission Date: 20160526
  Serious: Yes (Hospitalization)
  Sender: FDA-Public Use
  Company Number: IT-009507513-1512ITA013708

PATIENT
  Age: 42 Year
  Sex: Male

DRUGS (4)
  1. SINEMET [Suspect]
     Active Substance: CARBIDOPA\LEVODOPA
     Indication: PARKINSON^S DISEASE
     Dosage: 4 DOSE UNIT, DAILY
     Route: 048
     Dates: start: 20150420, end: 20151222
  2. SINEMET [Suspect]
     Active Substance: CARBIDOPA\LEVODOPA
     Indication: PARKINSON^S DISEASE
     Dosage: 1 DOSE UNIT, DAILY
     Route: 048
     Dates: start: 20150420, end: 20151222
  3. MIRAPEXIN [Suspect]
     Active Substance: PRAMIPEXOLE
     Indication: PARKINSON^S DISEASE
     Dosage: 12.6 MG, QD
     Route: 048
     Dates: start: 20150420, end: 20151222
  4. AZILECT [Concomitant]
     Active Substance: RASAGILINE MESYLATE
     Dosage: UNK
     Dates: start: 20090101

REACTIONS (4)
  - Compulsive hoarding [Recovering/Resolving]
  - Insomnia [Recovering/Resolving]
  - Dopamine dysregulation syndrome [Recovering/Resolving]
  - Psychomotor hyperactivity [Recovering/Resolving]

NARRATIVE: CASE EVENT DATE: 20150921
